FAERS Safety Report 7246891-0 (Version None)
Quarter: 2011Q1

REPORT INFORMATION
  Report Type: 
  Country: None (occurrence: None)
  Receive Date: 20110127
  Receipt Date: 20110124
  Transmission Date: 20110831
  Serious: Yes (Hospitalization)
  Sender: FDA-Public Use
  Company Number: PHHO2010BE14491

PATIENT
  Sex: Male
  Weight: 79 kg

DRUGS (4)
  1. MEDROL [Suspect]
     Indication: LIVER TRANSPLANT
     Dosage: 4 MG, UNK
     Dates: start: 20100901
  2. TACROLIMUS [Suspect]
     Indication: LIVER TRANSPLANT
     Dosage: 2 MG, BID
     Route: 048
     Dates: start: 20100221
  3. CERTICAN [Suspect]
     Indication: LIVER TRANSPLANT
     Dosage: 3 MG, BID
     Route: 048
     Dates: start: 20100324
  4. ZOVIRAX [Suspect]
     Indication: EPSTEIN-BARR VIRUS INFECTION
     Dosage: UNK
     Dates: start: 20100901

REACTIONS (5)
  - NEUTROPENIA [None]
  - URINARY TRACT INFECTION [None]
  - PLEURAL EFFUSION [None]
  - DYSPNOEA [None]
  - B-CELL LYMPHOMA [None]
